FAERS Safety Report 6715908-1 (Version None)
Quarter: 2010Q2

REPORT INFORMATION
  Report Type: 
  Country: None (occurrence: None)
  Receive Date: 20100507
  Receipt Date: 20100426
  Transmission Date: 20101027
  Serious: Yes (Hospitalization)
  Sender: FDA-Public Use
  Company Number: PHHY2010US26852

PATIENT
  Sex: Male
  Weight: 60 kg

DRUGS (1)
  1. EXJADE [Suspect]
     Indication: SICKLE CELL ANAEMIA
     Dosage: 1250 MG DAILY
     Route: 048
     Dates: start: 20090408

REACTIONS (3)
  - DEVICE RELATED INFECTION [None]
  - INFECTION [None]
  - TREATMENT NONCOMPLIANCE [None]
